FAERS Safety Report 12237147 (Version 1)
Quarter: 2016Q2

REPORT INFORMATION
  Report Type: Spontaneous
  Country: ES (occurrence: ES)
  Receive Date: 20160405
  Receipt Date: 20160405
  Transmission Date: 20160815
  Serious: Yes (Other)
  Sender: FDA-Public Use
  Company Number: ES-BRISTOL-MYERS SQUIBB COMPANY-BMS-2016-024544

PATIENT
  Age: 73 Year
  Sex: Male

DRUGS (3)
  1. ABILIFY [Suspect]
     Active Substance: ARIPIPRAZOLE
     Indication: MAJOR DEPRESSION
     Dosage: 5 MG, QD
     Route: 065
  2. VENLAFAXINE [Concomitant]
     Active Substance: VENLAFAXINE HYDROCHLORIDE
     Indication: MAJOR DEPRESSION
     Dosage: 300 MG, QD
     Route: 065
  3. CLOMIPRAMINE [Concomitant]
     Active Substance: CLOMIPRAMINE
     Indication: MAJOR DEPRESSION
     Dosage: UNK UNK, QD
     Route: 042

REACTIONS (8)
  - Off label use [Unknown]
  - Pseudomonas infection [Unknown]
  - Dementia with Lewy bodies [Unknown]
  - Urinary retention [Recovered/Resolved]
  - Bacteraemia [Unknown]
  - Constipation [Recovered/Resolved]
  - Parkinsonism [Unknown]
  - Drug ineffective [Unknown]
